FAERS Safety Report 5334290-8 (Version None)
Quarter: 2007Q2

REPORT INFORMATION
  Report Type: 
  Country: None (occurrence: None)
  Receive Date: 20070525
  Receipt Date: 20070516
  Transmission Date: 20071010
  Serious: Yes (Hospitalization)
  Sender: FDA-Public Use
  Company Number: PHBS2007BR07698

PATIENT
  Age: 60 Year
  Sex: Male

DRUGS (3)
  1. SLOW-K [Suspect]
     Indication: MINERAL SUPPLEMENTATION
     Dosage: 600 MG, BID
     Route: 048
     Dates: end: 20070421
  2. SLOW-K [Suspect]
     Dosage: 600 MG, QD
     Route: 048
     Dates: start: 20070501
  3. FUROSEMIDE [Concomitant]
     Indication: DIURETIC THERAPY
     Dates: end: 20070421

REACTIONS (6)
  - CARDIAC OPERATION [None]
  - CORONARY ARTERY BYPASS [None]
  - FLUID RETENTION [None]
  - MITRAL VALVE REPAIR [None]
  - OEDEMA PERIPHERAL [None]
  - PYREXIA [None]
